FAERS Safety Report 8176979-1 (Version None)
Quarter: 2012Q1

REPORT INFORMATION
  Report Type: 
  Country: None (occurrence: None)
  Receive Date: 20120301
  Receipt Date: 20120223
  Transmission Date: 20120608
  Serious: Yes (Death, Other)
  Sender: FDA-Public Use
  Company Number: AU-JNJFOC-20111100568

PATIENT
  Sex: Female

DRUGS (5)
  1. PREDNISONE [Concomitant]
     Dosage: 1 TAB
     Route: 065
  2. PLAQUENIL [Concomitant]
     Route: 065
  3. REMICADE [Suspect]
     Indication: RHEUMATOID ARTHRITIS
     Route: 042
     Dates: start: 20110525
  4. REMICADE [Suspect]
     Route: 042
     Dates: start: 20110914
  5. METHOTREXATE [Concomitant]
     Route: 065

REACTIONS (3)
  - ARTHRALGIA [None]
  - ABDOMINAL PAIN UPPER [None]
  - GASTRIC CANCER [None]
